FAERS Safety Report 16129231 (Version 1)
Quarter: 2019Q1

REPORT INFORMATION
  Report Type: Spontaneous
  Country: FR (occurrence: FR)
  Receive Date: 20190328
  Receipt Date: 20190328
  Transmission Date: 20190418
  Serious: Yes (Hospitalization)
  Sender: FDA-Public Use
  Company Number: FR-009507513-1903FRA008467

PATIENT
  Age: 87 Year
  Sex: Female
  Weight: 50 kg

DRUGS (17)
  1. FOSAVANCE [Suspect]
     Active Substance: ALENDRONATE SODIUM\CHOLECALCIFEROL
     Indication: OSTEOPOROSIS
     Dosage: 1 DOSAGE FORM, QW
     Route: 048
     Dates: start: 20190115, end: 20190128
  2. BACTRIM [Suspect]
     Active Substance: SULFAMETHOXAZOLE\TRIMETHOPRIM
     Indication: SPONDYLITIS
     Dosage: 3 DOSAGE FORM, QD
     Route: 048
     Dates: start: 20190111, end: 20190128
  3. FOLIC ACID. [Concomitant]
     Active Substance: FOLIC ACID
     Dosage: UNK
     Route: 048
     Dates: start: 20190111, end: 20190128
  4. FOLINORAL [Concomitant]
     Active Substance: LEUCOVORIN CALCIUM
     Dosage: UNK
     Route: 048
  5. DOLIPRANE [Concomitant]
     Active Substance: ACETAMINOPHEN
     Dosage: UNK
     Route: 048
  6. TRANSIPEG (PEG3350\ELECTROLYTES) [Concomitant]
     Active Substance: POLYETHYLENE GLYCOL 3350\POTASSIUM CHLORIDE\SODIUM BICARBONATE\SODIUM CHLORIDE\SODIUM SULFATE ANHYDROUS
     Dosage: UNK
     Route: 048
  7. FUROSEMIDE. [Concomitant]
     Active Substance: FUROSEMIDE
     Dosage: UNK
     Route: 048
  8. DUROGESIC [Concomitant]
     Active Substance: FENTANYL
     Dosage: UNK
     Route: 062
  9. SERESTA [Concomitant]
     Active Substance: OXAZEPAM
     Dosage: UNK
     Route: 048
  10. ELIQUIS [Concomitant]
     Active Substance: APIXABAN
     Dosage: UNK
     Route: 048
  11. CEFOTAXIME SODIUM [Concomitant]
     Active Substance: CEFOTAXIME SODIUM
     Dosage: UNK
     Route: 042
     Dates: start: 20190104, end: 20190115
  12. CARBIDOPA (+) LEVODOPA [Concomitant]
     Active Substance: CARBIDOPA\LEVODOPA
     Route: 048
  13. DIFFU-K [Concomitant]
     Active Substance: POTASSIUM CHLORIDE
     Dosage: UNK
     Route: 048
  14. TARDYFERON [Concomitant]
     Active Substance: FERROUS SULFATE
     Dosage: UNK
     Route: 048
  15. ZYMAD [Concomitant]
     Active Substance: CHOLECALCIFEROL
     Dosage: UNK
     Route: 048
  16. AUGMENTIN [Concomitant]
     Active Substance: AMOXICILLIN\CLAVULANATE POTASSIUM
     Dosage: UNK
     Route: 048
     Dates: start: 20181208, end: 20181226
  17. OXYNORMORO [Concomitant]
     Active Substance: OXYCODONE HYDROCHLORIDE
     Dosage: UNK
     Route: 048

REACTIONS (2)
  - Oral herpes [Recovered/Resolved]
  - Glossitis [Recovered/Resolved]

NARRATIVE: CASE EVENT DATE: 20190125
